FAERS Safety Report 7581080-1 (Version None)
Quarter: 2011Q2

REPORT INFORMATION
  Report Type: 
  Country: None (occurrence: None)
  Receive Date: 20110629
  Receipt Date: 20110623
  Transmission Date: 20111010
  Serious: Yes (Death)
  Sender: FDA-Public Use
  Company Number: PHHY2011AU56777

PATIENT
  Age: 35 Year

DRUGS (8)
  1. CODEINE SULFATE [Suspect]
     Dosage: UNK
  2. DELTA-9-THC [Suspect]
  3. DIAZEPAM [Suspect]
  4. METHADONE HCL [Suspect]
     Dosage: UNK
  5. NORDAZEPAM [Suspect]
  6. FLUOXETINE HCL [Suspect]
     Dosage: UNK
  7. QUETIAPINE [Suspect]
  8. BENZTROPINE MESYLATE [Suspect]
     Dosage: UNK

REACTIONS (3)
  - RESPIRATORY DEPRESSION [None]
  - ACCIDENTAL POISONING [None]
  - OVERDOSE [None]
